FAERS Safety Report 21854594 (Version 1)
Quarter: 2023Q1

REPORT INFORMATION
  Report Type: Spontaneous
  Country: US (occurrence: None)
  Receive Date: 20230112
  Receipt Date: 20230112
  Transmission Date: 20230417
  Serious: Yes (Hospitalization)
  Sender: FDA-Public Use
  Company Number: None

PATIENT
  Sex: Male
  Weight: 103 kg

DRUGS (4)
  1. FLUOROURACIL [Suspect]
     Active Substance: FLUOROURACIL
  2. IRINOTECAN (CPT-11, CAMPTOSAR) [Concomitant]
  3. LEUCOVORIN CALCIUM [Concomitant]
  4. ELOXATIN [Concomitant]
     Active Substance: OXALIPLATIN

REACTIONS (13)
  - Pyrexia [None]
  - Abdominal pain [None]
  - Pain [None]
  - Abscess [None]
  - Flank pain [None]
  - Peripancreatic fluid collection [None]
  - Arthralgia [None]
  - Joint swelling [None]
  - Arthritis [None]
  - Ligament sprain [None]
  - Arthritis [None]
  - Enterococcus test positive [None]
  - Enterococcal infection [None]

NARRATIVE: CASE EVENT DATE: 20221227
